FAERS Safety Report 20435364 (Version 2)
Quarter: 2022Q3

REPORT INFORMATION
  Report Type: Report from Study
  Country: JP (occurrence: JP)
  Receive Date: 20220206
  Receipt Date: 20220722
  Transmission Date: 20221026
  Serious: Yes (Death)
  Sender: FDA-Public Use
  Company Number: JP-ABBVIE-22K-087-4266128-00

PATIENT
  Age: 75 Year
  Sex: Male
  Weight: 63 kg

DRUGS (4)
  1. RINVOQ [Suspect]
     Active Substance: UPADACITINIB
     Indication: Rheumatoid arthritis
     Route: 048
     Dates: start: 20200826, end: 20210817
  2. METHOTREXATE [Concomitant]
     Active Substance: METHOTREXATE
     Indication: Rheumatoid arthritis
     Dosage: OVER 8 MG/WEEK
  3. METHOTREXATE [Concomitant]
     Active Substance: METHOTREXATE
     Dosage: 6 MG/WEEK
  4. ZALTOPROFEN [Concomitant]
     Active Substance: ZALTOPROFEN
     Indication: Rheumatoid arthritis

REACTIONS (1)
  - Death [Fatal]

NARRATIVE: CASE EVENT DATE: 20210817
